FAERS Safety Report 18974501 (Version 1)
Quarter: 2021Q1

REPORT INFORMATION
  Report Type: Spontaneous
  Country: FR (occurrence: FR)
  Receive Date: 20210305
  Receipt Date: 20210305
  Transmission Date: 20210420
  Serious: Yes (Hospitalization)
  Sender: FDA-Public Use
  Company Number: FR-ASTRAZENECA-2021A100549

PATIENT
  Age: 77 Year
  Sex: Male

DRUGS (13)
  1. DURVALUMAB. [Suspect]
     Active Substance: DURVALUMAB
     Indication: SQUAMOUS CELL CARCINOMA
     Dosage: 10 MG/KG EVERY 15 DAYS
     Route: 042
     Dates: start: 20181012, end: 20190329
  2. BRONCHODILATOR (BECLOMETASONE, FORMOTEROL, GLYCOPYRRONIUM) [Concomitant]
     Indication: INCREASED BRONCHIAL SECRETION
  3. BRONCHODILATOR (BECLOMETASONE, FORMOTEROL, GLYCOPYRRONIUM) [Concomitant]
     Indication: DYSPNOEA
  4. FORMOTEROL [Suspect]
     Active Substance: FORMOTEROL
     Route: 055
  5. METRONIDAZOLE. [Concomitant]
     Active Substance: METRONIDAZOLE
     Indication: RESPIRATORY SYMPTOM
     Dosage: 45 MG/M2
  6. GLYCOPYRRONIUM [Concomitant]
     Active Substance: GLYCOPYRRONIUM
  7. DURVALUMAB. [Suspect]
     Active Substance: DURVALUMAB
     Indication: NEOPLASM
     Dosage: 10 MG/KG EVERY 15 DAYS
     Route: 042
     Dates: start: 20181012, end: 20190329
  8. CARBOPLATIN. [Concomitant]
     Active Substance: CARBOPLATIN
     Indication: LARYNGEAL CANCER
     Dates: start: 2012
  9. PACLITAXEL. [Concomitant]
     Active Substance: PACLITAXEL
     Indication: LARYNGEAL CANCER
     Dosage: 45 MG/M2
  10. CEFEPIME [Concomitant]
     Active Substance: CEFEPIME HYDROCHLORIDE
     Indication: RESPIRATORY SYMPTOM
     Dosage: 45 MG/M2
  11. AZITHROMYCIN ANHYDROUS. [Concomitant]
     Active Substance: AZITHROMYCIN ANHYDROUS
     Indication: ANALGESIC INTERVENTION SUPPORTIVE THERAPY
  12. BECLOMETASONE [Concomitant]
     Active Substance: BECLOMETHASONE DIPROPIONATE
  13. AMOXICILLIN?CLAVULANATE [Concomitant]
     Active Substance: AMOXICILLIN\CLAVULANIC ACID
     Indication: PNEUMONIA
     Dosage: FOR 10 DAYS

REACTIONS (3)
  - Bronchiolitis [Recovering/Resolving]
  - Drug ineffective [Unknown]
  - Bronchiectasis [Recovering/Resolving]

NARRATIVE: CASE EVENT DATE: 201901
